FAERS Safety Report 12813831 (Version 1)
Quarter: 2016Q4

REPORT INFORMATION
  Report Type: Spontaneous
  Country: US (occurrence: US)
  Receive Date: 20161005
  Receipt Date: 20161005
  Transmission Date: 20170207
  Serious: Yes (Other)
  Sender: FDA-Public Use
  Company Number: US-AMGEN-USASP2016037578

PATIENT
  Sex: Female

DRUGS (1)
  1. PROLIA [Suspect]
     Active Substance: DENOSUMAB
     Indication: OSTEOPOROSIS POSTMENOPAUSAL
     Dosage: UNK
     Route: 065

REACTIONS (13)
  - Cataract [Unknown]
  - Multiple allergies [Unknown]
  - Ear discomfort [Unknown]
  - Ear congestion [Unknown]
  - Sinus congestion [Unknown]
  - Headache [Unknown]
  - Musculoskeletal pain [Unknown]
  - Sneezing [Unknown]
  - Chest pain [Unknown]
  - Hypoacusis [Unknown]
  - Dyspnoea [Unknown]
  - Throat irritation [Unknown]
  - Back pain [Unknown]
